FAERS Safety Report 5553611-4 (Version None)
Quarter: 2007Q4

REPORT INFORMATION
  Report Type: 
  Country: None (occurrence: None)
  Receive Date: 20071213
  Receipt Date: 20071205
  Transmission Date: 20080405
  Serious: Yes (Other)
  Sender: FDA-Public Use
  Company Number: PHBS2007BR20483

PATIENT
  Age: 58 Year
  Sex: Female
  Weight: 78 kg

DRUGS (3)
  1. MERIGEST [Suspect]
     Indication: HORMONE REPLACEMENT THERAPY
     Route: 048
  2. MERIGEST [Suspect]
     Route: 048
     Dates: start: 20071206
  3. METFORMIN HCL [Concomitant]
     Indication: DIABETES MELLITUS
     Dosage: 500 MG, BID
     Route: 048

REACTIONS (9)
  - ARTHRALGIA [None]
  - FATIGUE [None]
  - HYPERHIDROSIS [None]
  - INSOMNIA [None]
  - MENISCUS LESION [None]
  - MENISCUS OPERATION [None]
  - MOOD ALTERED [None]
  - OSTEOARTHRITIS [None]
  - PAIN [None]
